FAERS Safety Report 24891569 (Version 1)
Quarter: 2025Q1

REPORT INFORMATION
  Report Type: Spontaneous
  Country: PT (occurrence: PT)
  Receive Date: 20250127
  Receipt Date: 20250127
  Transmission Date: 20250409
  Serious: Yes (Other)
  Sender: VISTAPHARM
  Company Number: PT-VISTAPHARM-2025-PT-000013

PATIENT
  Age: 70 Year
  Sex: Male

DRUGS (2)
  1. MYCOPHENOLATE MOFETIL [Suspect]
     Active Substance: MYCOPHENOLATE MOFETIL
     Indication: Rheumatoid arthritis
  2. DEVICE [Suspect]
     Active Substance: DEVICE

REACTIONS (2)
  - Hypertensive heart disease [Unknown]
  - Diabetes mellitus [Unknown]
